FAERS Safety Report 17034550 (Version 1)
Quarter: 2019Q4

REPORT INFORMATION
  Report Type: Other
  Country: US (occurrence: US)
  Receive Date: 20191115
  Receipt Date: 20191115
  Transmission Date: 20200122
  Serious: Yes (Hospitalization)
  Sender: FDA-Public Use
  Company Number: US-ORCHID HEALTHCARE-2076885

PATIENT
  Age: 36 Year
  Sex: Male

DRUGS (6)
  1. MIDAZOLAM [Suspect]
     Active Substance: MIDAZOLAM HYDROCHLORIDE
     Route: 065
  2. SERTRALINE [Suspect]
     Active Substance: SERTRALINE HYDROCHLORIDE
     Route: 065
  3. PROPOFOL. [Suspect]
     Active Substance: PROPOFOL
     Route: 065
  4. HYDROMORPHOME [Suspect]
     Active Substance: HYDROMORPHONE
     Route: 065
  5. ARIPIPRAZOLE, TABLET [Suspect]
     Active Substance: ARIPIPRAZOLE
     Indication: DEPRESSION
     Route: 065
  6. MEPERIDINE [Suspect]
     Active Substance: MEPERIDINE
     Route: 065

REACTIONS (1)
  - Serotonin syndrome [Recovered/Resolved]
